FAERS Safety Report 13813909 (Version 1)
Quarter: 2017Q3

REPORT INFORMATION
  Report Type: Spontaneous
  Country: US (occurrence: US)
  Receive Date: 20170731
  Receipt Date: 20170731
  Transmission Date: 20171127
  Serious: No
  Sender: FDA-Public Use
  Company Number: US-PFIZER INC-2017326239

PATIENT

DRUGS (1)
  1. DILANTIN [Suspect]
     Active Substance: PHENYTOIN
     Dosage: 100 MG, 3X/DAY

REACTIONS (1)
  - Drug level increased [Unknown]
